FAERS Safety Report 9784200 (Version 3)
Quarter: 2014Q1

REPORT INFORMATION
  Report Type: Spontaneous
  Country: IT (occurrence: IT)
  Receive Date: 20131226
  Receipt Date: 20140320
  Transmission Date: 20141002
  Serious: Yes (Death, Hospitalization, Disabling)
  Sender: FDA-Public Use
  Company Number: IT-CELGENEUS-083-20785-13121558

PATIENT
  Age: 65 Year
  Sex: Male
  Weight: 73 kg

DRUGS (11)
  1. THALIDOMIDE CELGENE [Suspect]
     Indication: PLASMA CELL MYELOMA
     Dosage: 50 MILLIGRAM
     Route: 048
     Dates: start: 20130916, end: 20131107
  2. THALIDOMIDE CELGENE [Suspect]
     Dosage: 50 MILLIGRAM
     Route: 048
     Dates: end: 20131112
  3. BORTEZOMIB [Concomitant]
     Indication: PLASMA CELL MYELOMA
     Route: 041
     Dates: start: 20130730, end: 20131107
  4. PLAVIX [Concomitant]
     Indication: MYOCARDIAL ISCHAEMIA
     Route: 048
  5. CORDARONE [Concomitant]
     Indication: ARRHYTHMIA
     Route: 048
  6. VILDAGLIPTIN [Concomitant]
     Indication: PRODUCT USED FOR UNKNOWN INDICATION
     Route: 065
  7. REPAGLINIDE [Concomitant]
     Indication: PRODUCT USED FOR UNKNOWN INDICATION
     Route: 065
  8. ALLOPURINOL [Concomitant]
     Indication: PRODUCT USED FOR UNKNOWN INDICATION
     Route: 065
  9. PANTOPRAZOLE [Concomitant]
     Indication: PRODUCT USED FOR UNKNOWN INDICATION
     Dosage: 20 MILLIGRAM
     Route: 065
  10. ISOSORBIDE MONONITRATE [Concomitant]
     Indication: PRODUCT USED FOR UNKNOWN INDICATION
     Dosage: 50 MILLIGRAM
     Route: 065
  11. FUROSEMIDE [Concomitant]
     Indication: PRODUCT USED FOR UNKNOWN INDICATION
     Dosage: 25 MILLIGRAM
     Route: 065

REACTIONS (3)
  - Pancreatitis acute [Fatal]
  - Neuropathy peripheral [Not Recovered/Not Resolved]
  - General physical health deterioration [Fatal]
